FAERS Safety Report 6954328-1 (Version None)
Quarter: 2010Q3

REPORT INFORMATION
  Report Type: 
  Country: None (occurrence: None)
  Receive Date: 20100829
  Receipt Date: 20100713
  Transmission Date: 20110219
  Serious: No
  Sender: FDA-Public Use
  Company Number: US-ABBOTT-10P-163-0656834-00

PATIENT
  Sex: Male
  Weight: 83.99 kg

DRUGS (5)
  1. NIASPAN [Suspect]
     Indication: HYPERLIPIDAEMIA
     Dosage: NIGHTLY
     Route: 048
  2. SYNTHROID [Concomitant]
     Indication: PRODUCT USED FOR UNKNOWN INDICATION
     Dosage: AS DIRECTED
  3. BETA BLOCKER [Concomitant]
     Indication: PRODUCT USED FOR UNKNOWN INDICATION
     Dosage: AS DIRECTED
  4. FLAX SEED OIL [Concomitant]
     Indication: PRODUCT USED FOR UNKNOWN INDICATION
     Dosage: AS DIRECTED
  5. FISH OIL [Concomitant]
     Indication: PRODUCT USED FOR UNKNOWN INDICATION
     Dosage: AS DIRECTED

REACTIONS (2)
  - FEELING HOT [None]
  - FLUSHING [None]
